FAERS Safety Report 7361552-5 (Version None)
Quarter: 2011Q1

REPORT INFORMATION
  Report Type: 
  Country: None (occurrence: None)
  Receive Date: 20110318
  Receipt Date: 20110310
  Transmission Date: 20110831
  Serious: Yes (Hospitalization)
  Sender: FDA-Public Use
  Company Number: CO-ROCHE-754978

PATIENT
  Sex: Female

DRUGS (3)
  1. MIRCERA [Suspect]
     Route: 058
     Dates: start: 20100627
  2. LEVOTHYROXINE SODIUM [Concomitant]
     Route: 048
  3. AMLODIPINE [Concomitant]
     Route: 048

REACTIONS (1)
  - HAEMOGLOBIN DECREASED [None]
